FAERS Safety Report 4806002-5 (Version None)
Quarter: 2005Q4

REPORT INFORMATION
  Report Type: 
  Country: None (occurrence: None)
  Receive Date: 20051021
  Receipt Date: 20041112
  Transmission Date: 20060501
  Serious: Yes (Life-Threatening)
  Sender: FDA-Public Use
  Company Number: FR-GLAXOSMITHKLINE-B0357224A

PATIENT
  Age: 31 Year
  Sex: Female

DRUGS (3)
  1. CLAMOXYL [Suspect]
     Dosage: 1G SINGLE DOSE
     Route: 048
     Dates: start: 20041014, end: 20041014
  2. AUGMENTIN '125' [Suspect]
     Dosage: 1G TWICE PER DAY
     Route: 048
     Dates: start: 20041002, end: 20041012
  3. TRAMADOL HCL [Concomitant]
     Dosage: 100MG TWICE PER DAY
     Route: 048
     Dates: start: 20041002, end: 20041012

REACTIONS (2)
  - ANGIONEUROTIC OEDEMA [None]
  - DRUG EXPOSURE DURING PREGNANCY [None]
